FAERS Safety Report 4491898-X (Version None)
Quarter: 2004Q4

REPORT INFORMATION
  Report Type: 
  Country: None (occurrence: None)
  Receive Date: 20041101
  Receipt Date: 20041020
  Transmission Date: 20050328
  Serious: No
  Sender: FDA-Public Use
  Company Number: 2004SE05838

PATIENT
  Age: 71 Year
  Sex: Female

DRUGS (3)
  1. NOLVADEX [Suspect]
     Indication: BREAST CANCER
     Dates: start: 20040804, end: 20040815
  2. ATACAND [Concomitant]
  3. NORVASC [Concomitant]

REACTIONS (1)
  - DEAFNESS UNILATERAL [None]
